FAERS Safety Report 7006968-1 (Version None)
Quarter: 2010Q3

REPORT INFORMATION
  Report Type: 
  Country: None (occurrence: None)
  Receive Date: 20100922
  Receipt Date: 20100913
  Transmission Date: 20110219
  Serious: Yes (Hospitalization)
  Sender: FDA-Public Use
  Company Number: US-JNJFOC-20100904634

PATIENT
  Sex: Female
  Weight: 61.24 kg

DRUGS (8)
  1. FENTANYL CITRATE [Suspect]
     Indication: BACK PAIN
     Route: 062
  2. FENTANYL CITRATE [Suspect]
     Route: 062
  3. BUMEX [Concomitant]
     Indication: DIURETIC THERAPY
     Route: 048
  4. ZOLOFT [Concomitant]
     Indication: DEPRESSION
     Route: 048
  5. NORVASC [Concomitant]
     Indication: HYPERTENSION
     Route: 048
  6. ALDACTONE [Concomitant]
     Indication: HYPERTENSION
     Route: 048
  7. POTASSIUM [Concomitant]
     Indication: MEDICAL DIET
     Route: 048
  8. RANEXA [Concomitant]
     Indication: ANGINA PECTORIS
     Route: 048

REACTIONS (4)
  - ANGIOPATHY [None]
  - EATING DISORDER [None]
  - MOVEMENT DISORDER [None]
  - WITHDRAWAL SYNDROME [None]
